FAERS Safety Report 7339714-2 (Version None)
Quarter: 2011Q1

REPORT INFORMATION
  Report Type: 
  Country: None (occurrence: None)
  Receive Date: 20110304
  Receipt Date: 20110304
  Transmission Date: 20110831
  Serious: No
  Sender: FDA-Public Use
  Company Number: None

PATIENT
  Sex: Female
  Weight: 63.05 kg

DRUGS (2)
  1. TAXOL [Suspect]
     Indication: OVARIAN CANCER METASTATIC
     Dosage: 140 MG - WEEKLY - IV
     Route: 042
     Dates: start: 20110217
  2. TAXOL [Suspect]
     Indication: OVARIAN CANCER METASTATIC
     Dosage: 140 MG - WEEKLY - IV
     Route: 042
     Dates: start: 20110303

REACTIONS (5)
  - BLOOD PRESSURE SYSTOLIC INCREASED [None]
  - INFUSION RELATED REACTION [None]
  - HYPERHIDROSIS [None]
  - DYSPNOEA [None]
  - TACHYCARDIA [None]
